FAERS Safety Report 17006531 (Version 1)
Quarter: 2019Q4

REPORT INFORMATION
  Report Type: Report from Study
  Country: IT (occurrence: IT)
  Receive Date: 20191107
  Receipt Date: 20191107
  Transmission Date: 20200122
  Serious: Yes (Life-Threatening)
  Sender: FDA-Public Use
  Company Number: IT-MYLANLABS-2019M1106711

PATIENT
  Sex: Female
  Weight: 71 kg

DRUGS (101)
  1. ONDANSETRON [Suspect]
     Active Substance: ONDANSETRON
     Dosage: 8 MG, INFUSION
     Dates: start: 20180512
  2. CHLORPHENAMINE [Suspect]
     Active Substance: CHLORPHENIRAMINE MALEATE
     Dosage: 10 MG, INFUSION
     Dates: start: 20180419
  3. CYCLOPHOSPHAMIDE. [Suspect]
     Active Substance: CYCLOPHOSPHAMIDE
     Dosage: 1.335 MG, INFUSION
     Dates: start: 20180622
  4. VINCRISTINE [Suspect]
     Active Substance: VINCRISTINE
     Indication: DIFFUSE LARGE B-CELL LYMPHOMA
     Dosage: 2 MG
     Route: 040
     Dates: start: 20180329
  5. METHYLPREDNISOLONE. [Suspect]
     Active Substance: METHYLPREDNISOLONE
     Dosage: 125 MG
     Route: 040
     Dates: start: 20180713
  6. RINGER^S SOLUTION                  /06440701/ [Concomitant]
     Dosage: INFUSION
     Dates: start: 20180927
  7. RINGER^S SOLUTION                  /06440701/ [Concomitant]
     Dosage: INFUSION
     Dates: start: 20181024
  8. DESAMETASONE [Concomitant]
     Active Substance: DEXAMETHASONE
     Dosage: 14.24 MG, INFUSION
     Dates: start: 20180928
  9. SODIUM CHLORIDE 0.9% [Concomitant]
     Active Substance: SODIUM CHLORIDE
     Dosage: INFUSION
     Dates: start: 20181024
  10. SODIUM CHLORIDE 0.9% [Concomitant]
     Active Substance: SODIUM CHLORIDE
     Dosage: INFUSION
     Dates: start: 20181025
  11. PALONOSETRON. [Concomitant]
     Active Substance: PALONOSETRON HYDROCHLORIDE
     Dosage: 250 MICROGRAM
     Route: 030
     Dates: start: 20180926
  12. ONDANSETRON [Suspect]
     Active Substance: ONDANSETRON
     Dosage: 8 MG, WITH ETOPOSIDE AND IFOSFAMIDE
     Dates: start: 20180928
  13. ONDANSETRON [Suspect]
     Active Substance: ONDANSETRON
     Dosage: 8 MG, WITH IEV THERAPY
     Dates: start: 20181026
  14. CYCLOPHOSPHAMIDE. [Suspect]
     Active Substance: CYCLOPHOSPHAMIDE
     Dosage: 1.335 MG, INFUSION
     Dates: start: 20180512
  15. DOXORUBICIN HYDROCHLORIDE. [Suspect]
     Active Substance: DOXORUBICIN HYDROCHLORIDE
     Indication: DIFFUSE LARGE B-CELL LYMPHOMA
     Dosage: 89 MG
     Route: 040
     Dates: start: 20180329
  16. DOXORUBICIN HYDROCHLORIDE. [Suspect]
     Active Substance: DOXORUBICIN HYDROCHLORIDE
     Dosage: 89 MG
     Route: 040
     Dates: start: 20180601
  17. EPIRUBICINE [Suspect]
     Active Substance: EPIRUBICIN
     Indication: DIFFUSE LARGE B-CELL LYMPHOMA
     Dosage: 178 MG
     Route: 030
     Dates: start: 20180926
  18. IFOSFAMIDE. [Suspect]
     Active Substance: IFOSFAMIDE
     Dosage: 4.400 MG, INFUSION
     Dates: start: 20180927
  19. GLUCOSE [Concomitant]
     Active Substance: DEXTROSE
     Dosage: 500 ML, INFUSION
     Dates: start: 20181025
  20. GLUCOSE [Concomitant]
     Active Substance: DEXTROSE
     Dosage: 500 ML, INFUSION
     Dates: start: 20181026
  21. RINGER^S SOLUTION                  /06440701/ [Concomitant]
     Dosage: INFUSION
     Dates: start: 20181025
  22. DESAMETASONE [Concomitant]
     Active Substance: DEXAMETHASONE
     Dosage: 14.24 MG, INFUSION
     Dates: start: 20181026
  23. MESNA. [Concomitant]
     Active Substance: MESNA
     Dosage: 4.450 MG, INFUSION
     Dates: start: 20181024
  24. SODIUM CHLORIDE 0.9% [Concomitant]
     Active Substance: SODIUM CHLORIDE
     Dosage: INFUSION
     Dates: start: 20180926
  25. ONDANSETRON [Suspect]
     Active Substance: ONDANSETRON
     Dosage: 8 MG, INFUSION
     Dates: start: 20180713
  26. CHLORPHENAMINE [Suspect]
     Active Substance: CHLORPHENIRAMINE MALEATE
     Dosage: 10 MG, INFUSION
     Dates: start: 20180512
  27. CHLORPHENAMINE [Suspect]
     Active Substance: CHLORPHENIRAMINE MALEATE
     Dosage: 10 MG, INFUSION
     Dates: start: 20180622
  28. CHLORPHENAMINE [Suspect]
     Active Substance: CHLORPHENIRAMINE MALEATE
     Dosage: 10 MG, INFUSION
     Dates: start: 20180713
  29. CYCLOPHOSPHAMIDE. [Suspect]
     Active Substance: CYCLOPHOSPHAMIDE
     Indication: DIFFUSE LARGE B-CELL LYMPHOMA
     Dosage: 1.33 MILLIGRAM
     Dates: start: 20180329
  30. TRUXIMA [Suspect]
     Active Substance: RITUXIMAB-ABBS
     Dosage: UNK,AS MAINTENANCE
     Route: 042
     Dates: start: 20180803
  31. VINCRISTINE [Suspect]
     Active Substance: VINCRISTINE
     Dosage: 2 MG
     Route: 040
     Dates: start: 20180601
  32. VINCRISTINE [Suspect]
     Active Substance: VINCRISTINE
     Dosage: 2 MG
     Route: 040
     Dates: start: 20180622
  33. IFOSFAMIDE. [Suspect]
     Active Substance: IFOSFAMIDE
     Indication: DIFFUSE LARGE B-CELL LYMPHOMA
     Dosage: 4.400 MG, INFUSION
     Dates: start: 20180926
  34. POTASSIUM CHLORIDE. [Concomitant]
     Active Substance: POTASSIUM CHLORIDE
     Dosage: 40 MEQ, INFUSION
     Dates: start: 20181026
  35. DESAMETASONE [Concomitant]
     Active Substance: DEXAMETHASONE
     Dosage: 14.24 MG, INFUSION
     Dates: start: 20180926
  36. MESNA. [Concomitant]
     Active Substance: MESNA
     Dosage: 4.450 MG, INFUSION
     Dates: start: 20180927
  37. MESNA. [Concomitant]
     Active Substance: MESNA
     Dosage: 4.450 MG, INFUSION
     Dates: start: 20181026
  38. SODIUM CHLORIDE 0.9% [Concomitant]
     Active Substance: SODIUM CHLORIDE
     Dosage: INFUSION
     Dates: start: 20181026
  39. ONDANSETRON [Suspect]
     Active Substance: ONDANSETRON
     Dosage: 8 MG, WITH IEV THERAPY
     Dates: start: 20181025
  40. CYCLOPHOSPHAMIDE. [Suspect]
     Active Substance: CYCLOPHOSPHAMIDE
     Dosage: 1.335 MG, INFUSION
     Dates: start: 20180419
  41. TRUXIMA [Suspect]
     Active Substance: RITUXIMAB-ABBS
     Dosage: UNK + CHOP
     Route: 042
     Dates: start: 20180531
  42. TRUXIMA [Suspect]
     Active Substance: RITUXIMAB-ABBS
     Dosage: UNK + CHOP
     Route: 042
     Dates: start: 20180621
  43. TRUXIMA [Suspect]
     Active Substance: RITUXIMAB-ABBS
     Dosage: UNK,AS MAINTENANCE
     Route: 042
     Dates: start: 20180823
  44. TRUXIMA [Suspect]
     Active Substance: RITUXIMAB-ABBS
     Dosage: 667.5 MILLIGRAM,UNK + IEV
     Route: 042
     Dates: start: 20180925
  45. DOXORUBICIN HYDROCHLORIDE. [Suspect]
     Active Substance: DOXORUBICIN HYDROCHLORIDE
     Dosage: 89 MG
     Route: 040
     Dates: start: 20180512
  46. DOXORUBICIN HYDROCHLORIDE. [Suspect]
     Active Substance: DOXORUBICIN HYDROCHLORIDE
     Dosage: 89 MG
     Route: 040
     Dates: start: 20180713
  47. METHYLPREDNISOLONE. [Suspect]
     Active Substance: METHYLPREDNISOLONE
     Dosage: 125 MG
     Route: 040
     Dates: start: 20180419
  48. EPIRUBICINE [Suspect]
     Active Substance: EPIRUBICIN
     Dosage: 178 MG
     Route: 030
     Dates: start: 20181024
  49. GLUCOSE [Concomitant]
     Active Substance: DEXTROSE
     Dosage: 500 ML, INFUSION
     Dates: start: 20180926
  50. GLUCOSE [Concomitant]
     Active Substance: DEXTROSE
     Dosage: 500 ML, INFUSION
     Dates: start: 20180928
  51. POTASSIUM CHLORIDE. [Concomitant]
     Active Substance: POTASSIUM CHLORIDE
     Dosage: 40 MEQ, INFUSION
     Dates: start: 20180928
  52. SODIUM CHLORIDE 0.9% [Concomitant]
     Active Substance: SODIUM CHLORIDE
     Dosage: INFUSION
     Dates: start: 20180927
  53. CYCLOPHOSPHAMIDE. [Suspect]
     Active Substance: CYCLOPHOSPHAMIDE
     Dosage: 1.335 MG, INFUSION
     Dates: start: 20180601
  54. METHYLPREDNISOLONE. [Suspect]
     Active Substance: METHYLPREDNISOLONE
     Indication: DIFFUSE LARGE B-CELL LYMPHOMA
     Dosage: 125 MG
     Route: 040
     Dates: start: 20180329
  55. METHYLPREDNISOLONE. [Suspect]
     Active Substance: METHYLPREDNISOLONE
     Dosage: 125 MG
     Route: 040
     Dates: start: 20180601
  56. ETOPOSIDE. [Suspect]
     Active Substance: ETOPOSIDE
     Indication: DIFFUSE LARGE B-CELL LYMPHOMA
     Dosage: 267 MG, INFUSION
     Dates: start: 20180926
  57. ETOPOSIDE. [Suspect]
     Active Substance: ETOPOSIDE
     Dosage: 267 MG, INFUSION
     Dates: start: 20180927
  58. IFOSFAMIDE. [Suspect]
     Active Substance: IFOSFAMIDE
     Dosage: 4.400 MG, INFUSION
     Dates: start: 20180928
  59. IFOSFAMIDE. [Suspect]
     Active Substance: IFOSFAMIDE
     Dosage: 4.400 MG, INFUSION
     Dates: start: 20181024
  60. POTASSIUM CHLORIDE. [Concomitant]
     Active Substance: POTASSIUM CHLORIDE
     Dosage: 40 MEQ, INFUSION
     Dates: start: 20180927
  61. POTASSIUM CHLORIDE. [Concomitant]
     Active Substance: POTASSIUM CHLORIDE
     Dosage: 40 MEQ, INFUSION
     Dates: start: 20181024
  62. RINGER^S SOLUTION                  /06440701/ [Concomitant]
     Dosage: INFUSION
     Dates: start: 20180928
  63. PALONOSETRON. [Concomitant]
     Active Substance: PALONOSETRON HYDROCHLORIDE
     Dosage: 250 MICROGRAM
     Route: 030
     Dates: start: 20181024
  64. CHLORPHENAMINE [Suspect]
     Active Substance: CHLORPHENIRAMINE MALEATE
     Indication: DIFFUSE LARGE B-CELL LYMPHOMA
     Dosage: 10 MG, INFUSION
     Dates: start: 20180329
  65. TRUXIMA [Suspect]
     Active Substance: RITUXIMAB-ABBS
     Dosage: UNK + CHOP
     Route: 042
     Dates: start: 20180418
  66. DOXORUBICIN HYDROCHLORIDE. [Suspect]
     Active Substance: DOXORUBICIN HYDROCHLORIDE
     Dosage: 89 MG
     Route: 040
     Dates: start: 20180419
  67. ETOPOSIDE. [Suspect]
     Active Substance: ETOPOSIDE
     Dosage: 267 MG, INFUSION
     Dates: start: 20180928
  68. ETOPOSIDE. [Suspect]
     Active Substance: ETOPOSIDE
     Dosage: 267 MG, INFUSION
     Dates: start: 20181026
  69. GLUCOSE [Concomitant]
     Active Substance: DEXTROSE
     Dosage: 500 ML, INFUSION
     Dates: start: 20180927
  70. GLUCOSE [Concomitant]
     Active Substance: DEXTROSE
     Dosage: 500 ML, INFUSION
     Dates: start: 20181024
  71. DESAMETASONE [Concomitant]
     Active Substance: DEXAMETHASONE
     Dosage: 14.24 MG, INFUSION
     Dates: start: 20180927
  72. MESNA. [Concomitant]
     Active Substance: MESNA
     Dosage: 4.450 MG, INFUSION
     Dates: start: 20180926
  73. MESNA. [Concomitant]
     Active Substance: MESNA
     Dosage: 4.450 MG, INFUSION
     Dates: start: 20180928
  74. ONDANSETRON [Suspect]
     Active Substance: ONDANSETRON
     Dosage: 8 MG, INFUSION
     Dates: start: 20180622
  75. CHLORPHENAMINE [Suspect]
     Active Substance: CHLORPHENIRAMINE MALEATE
     Dosage: 10 MG, INFUSION
     Dates: start: 20180601
  76. TRUXIMA [Suspect]
     Active Substance: RITUXIMAB-ABBS
     Dosage: UNK + CHOP
     Route: 042
     Dates: start: 20180712
  77. DOXORUBICIN HYDROCHLORIDE. [Suspect]
     Active Substance: DOXORUBICIN HYDROCHLORIDE
     Dosage: 89 MG
     Route: 040
     Dates: start: 20180622
  78. VINCRISTINE [Suspect]
     Active Substance: VINCRISTINE
     Dosage: 2 MG
     Route: 040
     Dates: start: 20180419
  79. ETOPOSIDE. [Suspect]
     Active Substance: ETOPOSIDE
     Dosage: 267 MG, INFUSION
     Dates: start: 20181025
  80. IFOSFAMIDE. [Suspect]
     Active Substance: IFOSFAMIDE
     Dosage: 4.400 MG, INFUSION
     Dates: start: 20181025
  81. IFOSFAMIDE. [Suspect]
     Active Substance: IFOSFAMIDE
     Dosage: 4.400 MG, INFUSION
     Dates: start: 20181026
  82. POTASSIUM CHLORIDE. [Concomitant]
     Active Substance: POTASSIUM CHLORIDE
     Dosage: 40 MEQ, INFUSION
     Dates: start: 20180926
  83. RINGER^S SOLUTION                  /06440701/ [Concomitant]
     Dosage: INFUSION
     Dates: start: 20181026
  84. DESAMETASONE [Concomitant]
     Active Substance: DEXAMETHASONE
     Dosage: 14.24 MG, INFUSION
     Dates: start: 20181025
  85. ONDANSETRON [Suspect]
     Active Substance: ONDANSETRON
     Indication: DIFFUSE LARGE B-CELL LYMPHOMA
     Dosage: 8 MG, INFUSION
     Dates: start: 20180329
  86. ONDANSETRON [Suspect]
     Active Substance: ONDANSETRON
     Dosage: 8 MG, INFUSION
     Dates: start: 20180419
  87. ONDANSETRON [Suspect]
     Active Substance: ONDANSETRON
     Dosage: 8 MG, INFUSION
     Dates: start: 20180601
  88. ONDANSETRON [Suspect]
     Active Substance: ONDANSETRON
     Dosage: 8 MG, WITH ETOPOSIDE AND IFOSFAMIDE
     Dates: start: 20180927
  89. CYCLOPHOSPHAMIDE. [Suspect]
     Active Substance: CYCLOPHOSPHAMIDE
     Dosage: 1.335 MG, INFUSION
     Dates: start: 20180713
  90. TRUXIMA [Suspect]
     Active Substance: RITUXIMAB-ABBS
     Indication: DIFFUSE LARGE B-CELL LYMPHOMA
     Dosage: 667.5 MG + CHOP
     Route: 042
     Dates: start: 20180328
  91. TRUXIMA [Suspect]
     Active Substance: RITUXIMAB-ABBS
     Dosage: UNK + CHOP
     Route: 042
     Dates: start: 20180511
  92. TRUXIMA [Suspect]
     Active Substance: RITUXIMAB-ABBS
     Dosage: 667.5 MILLIGRAM,UNK + IEV
     Route: 042
     Dates: start: 20181023
  93. VINCRISTINE [Suspect]
     Active Substance: VINCRISTINE
     Dosage: 2 MG
     Route: 040
     Dates: start: 20180512
  94. VINCRISTINE [Suspect]
     Active Substance: VINCRISTINE
     Dosage: 2 MG
     Route: 040
     Dates: start: 20180713
  95. METHYLPREDNISOLONE. [Suspect]
     Active Substance: METHYLPREDNISOLONE
     Dosage: 125 MG
     Route: 040
     Dates: start: 20180512
  96. METHYLPREDNISOLONE. [Suspect]
     Active Substance: METHYLPREDNISOLONE
     Dosage: 125 MG
     Route: 040
     Dates: start: 20180622
  97. ETOPOSIDE. [Suspect]
     Active Substance: ETOPOSIDE
     Dosage: 267 MG, INFUSION
     Dates: start: 20181024
  98. POTASSIUM CHLORIDE. [Concomitant]
     Active Substance: POTASSIUM CHLORIDE
     Dosage: 40 MEQ, INFUSION
     Dates: start: 20181025
  99. RINGER^S SOLUTION                  /06440701/ [Concomitant]
     Dosage: INFUSION
     Dates: start: 20180926
  100. MESNA. [Concomitant]
     Active Substance: MESNA
     Dosage: 4.450 MG, INFUSION
     Dates: start: 20181025
  101. SODIUM CHLORIDE 0.9% [Concomitant]
     Active Substance: SODIUM CHLORIDE
     Dosage: INFUSION
     Dates: start: 20180928

REACTIONS (3)
  - Asthenia [Recovered/Resolved]
  - Neutropenia [Recovered/Resolved]
  - Nausea [Recovered/Resolved]

NARRATIVE: CASE EVENT DATE: 20180622
